FAERS Safety Report 6293825-1 (Version None)
Quarter: 2009Q3

REPORT INFORMATION
  Report Type: 
  Country: None (occurrence: None)
  Receive Date: 20090731
  Receipt Date: 20090731
  Transmission Date: 20100115
  Serious: No
  Sender: FDA-Public Use
  Company Number: None

PATIENT
  Sex: Male
  Weight: 72.5755 kg

DRUGS (7)
  1. LIPITOR [Suspect]
     Indication: BLOOD CHOLESTEROL INCREASED
     Dosage: 40 MG, QDAY, PO
     Route: 048
     Dates: start: 20070601, end: 20090701
  2. VIAGRA [Concomitant]
  3. VICODIN [Concomitant]
  4. FLOMAX [Concomitant]
  5. PENICILLIN [Concomitant]
  6. METHYLPREDNISOLONE [Concomitant]
  7. SALSALATE [Concomitant]

REACTIONS (6)
  - AGGRESSION [None]
  - ANXIETY [None]
  - ASTHENIA [None]
  - MOOD ALTERED [None]
  - MUSCLE SPASMS [None]
  - STRESS [None]
